FAERS Safety Report 16465025 (Version 6)
Quarter: 2020Q1

REPORT INFORMATION
  Report Type: Spontaneous
  Country: US (occurrence: US)
  Receive Date: 20190621
  Receipt Date: 20200127
  Transmission Date: 20200409
  Serious: Yes (Other)
  Sender: FDA-Public Use
  Company Number: US-TAKEDA-2019TUS039008

PATIENT

DRUGS (26)
  1. PREVACID [Suspect]
     Active Substance: LANSOPRAZOLE
     Dosage: 30 MILLIGRAM, BID
     Route: 048
     Dates: start: 20091111
  2. VALSARTAN. [Concomitant]
     Active Substance: VALSARTAN
     Indication: BLOOD PRESSURE INCREASED
     Dosage: UNK
     Route: 048
     Dates: start: 20130429, end: 20140401
  3. FUROSEMIDE. [Concomitant]
     Active Substance: FUROSEMIDE
     Indication: HYPERTENSION
     Dosage: UNK
     Dates: start: 20140415, end: 20180806
  4. TYLENOL [Concomitant]
     Active Substance: ACETAMINOPHEN
     Indication: HEADACHE
  5. NEXIUM [Suspect]
     Active Substance: ESOMEPRAZOLE MAGNESIUM
     Indication: GASTROOESOPHAGEAL REFLUX DISEASE
     Dosage: 40 MILLIGRAM, BID
     Route: 048
     Dates: start: 20130211
  6. AZITHROMYCIN ANHYDROUS. [Concomitant]
     Active Substance: AZITHROMYCIN ANHYDROUS
     Indication: BACTERIAL INFECTION
     Dosage: UNK
     Dates: start: 20160221, end: 20161010
  7. PROTONIX [Suspect]
     Active Substance: PANTOPRAZOLE SODIUM
     Dosage: 40 MILLIGRAM, BID
     Route: 048
     Dates: start: 20110901, end: 20180701
  8. LANSOPRAZOLE. [Suspect]
     Active Substance: LANSOPRAZOLE
     Indication: GASTROOESOPHAGEAL REFLUX DISEASE
     Dosage: 30 MILLIGRAM, BID
     Route: 048
     Dates: start: 20100805, end: 20160301
  9. PANTOPRAZOLE [Suspect]
     Active Substance: PANTOPRAZOLE
     Dosage: 20 MILLIGRAM
     Route: 048
     Dates: end: 20180227
  10. PROTONIX [Suspect]
     Active Substance: PANTOPRAZOLE SODIUM
     Dosage: 40 MILLIGRAM, BID
     Route: 048
     Dates: start: 20160329
  11. PREVACID [Suspect]
     Active Substance: LANSOPRAZOLE
     Dosage: 30 MILLIGRAM, BID
     Route: 048
     Dates: start: 20140103, end: 20160308
  12. PREVACID [Suspect]
     Active Substance: LANSOPRAZOLE
     Dosage: UNK
     Route: 048
     Dates: start: 200605, end: 201302
  13. PANTOPRAZOLE [Suspect]
     Active Substance: PANTOPRAZOLE
     Indication: GASTROOESOPHAGEAL REFLUX DISEASE
     Dosage: 20 MILLIGRAM, BID
     Route: 048
     Dates: start: 20160403, end: 20180227
  14. PROTONIX [Suspect]
     Active Substance: PANTOPRAZOLE SODIUM
     Dosage: 40 MILLIGRAM, BID
     Route: 048
     Dates: start: 20160401, end: 20160816
  15. NEXIUM [Suspect]
     Active Substance: ESOMEPRAZOLE MAGNESIUM
     Dosage: UNK
     Route: 048
     Dates: start: 200605, end: 201302
  16. RANITIDINE. [Concomitant]
     Active Substance: RANITIDINE
     Dosage: UNK
     Dates: start: 20010822, end: 20180331
  17. PROTONIX [Suspect]
     Active Substance: PANTOPRAZOLE SODIUM
     Indication: GASTROOESOPHAGEAL REFLUX DISEASE
     Dosage: 40 MILLIGRAM, BID
     Route: 048
     Dates: start: 20020726
  18. PROTONIX [Suspect]
     Active Substance: PANTOPRAZOLE SODIUM
     Dosage: UNK
     Route: 048
     Dates: start: 200605, end: 201302
  19. PREVACID [Suspect]
     Active Substance: LANSOPRAZOLE
     Indication: GASTROOESOPHAGEAL REFLUX DISEASE
     Dosage: 30 MILLIGRAM, BID
     Route: 048
     Dates: start: 20060515, end: 20080422
  20. CEPHALEXIN                         /00145501/ [Concomitant]
     Active Substance: CEPHALEXIN
     Indication: BACTERIAL INFECTION
     Dosage: UNK
     Dates: start: 20150106
  21. PROTONIX [Suspect]
     Active Substance: PANTOPRAZOLE SODIUM
     Dosage: 40 MILLIGRAM, BID
     Route: 048
  22. OMEPRAZOLE. [Suspect]
     Active Substance: OMEPRAZOLE
     Indication: GASTROOESOPHAGEAL REFLUX DISEASE
     Dosage: 20 MILLIGRAM, BID
     Route: 048
     Dates: start: 20160816
  23. OMEPRAZOLE. [Suspect]
     Active Substance: OMEPRAZOLE
     Dosage: 20 MILLIGRAM, BID
     Route: 048
  24. DIOVAN [Concomitant]
     Active Substance: VALSARTAN
     Indication: BLOOD PRESSURE INCREASED
     Dosage: UNK
     Dates: start: 20091015, end: 20130405
  25. METOPROLOL. [Concomitant]
     Active Substance: METOPROLOL
     Indication: HYPERTENSION
     Dosage: UNK
     Dates: start: 20070815, end: 20181016
  26. ATORVASTATIN [Concomitant]
     Active Substance: ATORVASTATIN
     Indication: BLOOD CHOLESTEROL INCREASED
     Dosage: UNK
     Dates: start: 20120101, end: 20180329

REACTIONS (2)
  - Chronic kidney disease [Not Recovered/Not Resolved]
  - Renal failure [Not Recovered/Not Resolved]

NARRATIVE: CASE EVENT DATE: 201212
